FAERS Safety Report 24947592 (Version 1)
Quarter: 2025Q1

REPORT INFORMATION
  Report Type: Other
  Country: JP (occurrence: JP)
  Receive Date: 20250210
  Receipt Date: 20250210
  Transmission Date: 20250409
  Serious: Yes (Hospitalization, Other)
  Sender: SPECTRA MEDICAL DEVICES, LLC
  Company Number: JP-Spectra Medical Devices, LLC-2170849

PATIENT
  Age: 48 Year
  Sex: Male
  Weight: 98 kg

DRUGS (6)
  1. LIDOCAINE HYDROCHLORIDE [Suspect]
     Active Substance: LIDOCAINE HYDROCHLORIDE
     Indication: Local anaesthesia
  2. REMIFENTANIL HYDROCHLORIDE [Suspect]
     Active Substance: REMIFENTANIL HYDROCHLORIDE
  3. LIDOCAINE HYDROCHLORIDE AND EPINEPHRINE [Suspect]
     Active Substance: EPINEPHRINE\LIDOCAINE HYDROCHLORIDE
  4. FENTANYL [Suspect]
     Active Substance: FENTANYL
  5. ROCURONIUM [Suspect]
     Active Substance: ROCURONIUM BROMIDE
  6. REMIMAZOLAM [Suspect]
     Active Substance: REMIMAZOLAM

REACTIONS (4)
  - Local anaesthetic systemic toxicity [Recovered/Resolved]
  - Seizure [Unknown]
  - Electrocardiogram QT prolonged [Recovered/Resolved]
  - Electrocardiogram QRS complex prolonged [Recovered/Resolved]
